FAERS Safety Report 9007187 (Version 1)
Quarter: 2013Q1

REPORT INFORMATION
  Report Type: Spontaneous
  Country: US (occurrence: US)
  Receive Date: 20130110
  Receipt Date: 20130110
  Transmission Date: 20140127
  Serious: Yes (Hospitalization, Other)
  Sender: FDA-Public Use
  Company Number: US-ROCHE-796797

PATIENT
  Age: 13 Year
  Sex: Male
  Weight: 74.91 kg

DRUGS (7)
  1. ACCUTANE [Suspect]
     Indication: ACNE
     Route: 065
     Dates: start: 200309, end: 200403
  2. ACCUTANE [Suspect]
     Route: 065
     Dates: start: 200410, end: 200504
  3. AMNESTEEM [Suspect]
     Indication: ACNE
     Route: 065
     Dates: start: 200309, end: 200403
  4. AMNESTEEM [Suspect]
     Route: 065
     Dates: start: 200410, end: 200504
  5. CLARAVIS [Suspect]
     Indication: ACNE
     Route: 065
     Dates: start: 200309, end: 200403
  6. CLARAVIS [Suspect]
     Route: 065
     Dates: start: 200410, end: 200504
  7. MINOCYCLINE [Concomitant]

REACTIONS (7)
  - Colitis ulcerative [Unknown]
  - Inflammatory bowel disease [Unknown]
  - Emotional distress [Unknown]
  - Intestinal obstruction [Unknown]
  - Rectal polyp [Unknown]
  - Lip dry [Unknown]
  - Epistaxis [Unknown]
